FAERS Safety Report 8456029-X (Version None)
Quarter: 2012Q2

REPORT INFORMATION
  Report Type: 
  Country: None (occurrence: None)
  Receive Date: 20120621
  Receipt Date: 20120614
  Transmission Date: 20120825
  Serious: Yes (Other)
  Sender: FDA-Public Use
  Company Number: PHFR2012GB003161

PATIENT
  Sex: Female

DRUGS (5)
  1. LAMOTRIGINE [Concomitant]
     Indication: EPILEPSY
     Dosage: 100 MG AT MORNING AND 50 MG AT NIGHT
     Route: 048
  2. LEVETIRACETAM [Concomitant]
     Indication: EPILEPSY
     Dosage: 75 MG, TID
     Route: 048
  3. PENETROL [Concomitant]
     Dosage: 300 MG, DAILY AT NIGNT
     Route: 048
  4. VALPROIC ACID [Concomitant]
     Dosage: 500 MG, BID
     Route: 048
  5. CLOZARIL [Suspect]
     Indication: SCHIZOPHRENIA
     Dosage: (250 MG) 50 MG AT MORNING AND 200 MG AT NIGHT, DAILY
     Route: 048
     Dates: start: 20120313, end: 20120530

REACTIONS (6)
  - EAR INFECTION [None]
  - NEUTROPHIL COUNT DECREASED [None]
  - URINARY TRACT INFECTION [None]
  - DIFFERENTIAL WHITE BLOOD CELL COUNT ABNORMAL [None]
  - WHITE BLOOD CELL COUNT DECREASED [None]
  - NEUTROPENIA [None]
